FAERS Safety Report 8543412-7 (Version None)
Quarter: 2012Q3

REPORT INFORMATION
  Report Type: 
  Country: None (occurrence: None)
  Receive Date: 20120727
  Receipt Date: 20120725
  Transmission Date: 20120928
  Serious: Yes (Other)
  Sender: FDA-Public Use
  Company Number: US-PFIZER INC-2012180766

PATIENT
  Sex: Male
  Weight: 120.18 kg

DRUGS (5)
  1. ASCORBIC ACID [Concomitant]
     Dosage: UNK
  2. DECONAMINE [Concomitant]
     Dosage: UNK
  3. CLONIDINE [Concomitant]
     Indication: HYPERTENSION
     Dosage: UNK
  4. LITHIUM [Concomitant]
     Dosage: 500 MG, 2X/DAY
  5. GEODON [Suspect]
     Indication: SCHIZOAFFECTIVE DISORDER BIPOLAR TYPE
     Dosage: UNK
     Route: 048
     Dates: start: 20050101, end: 20110401

REACTIONS (9)
  - HALLUCINATION [None]
  - THERAPEUTIC RESPONSE UNEXPECTED [None]
  - BIPOLAR DISORDER [None]
  - DEMENTIA [None]
  - SCHIZOPHRENIA [None]
  - MALAISE [None]
  - TARDIVE DYSKINESIA [None]
  - HYPERTENSION [None]
  - ANXIETY [None]
